FAERS Safety Report 4465407-5 (Version None)
Quarter: 2004Q3

REPORT INFORMATION
  Report Type: 
  Country: None (occurrence: None)
  Receive Date: 20040930
  Receipt Date: 20040915
  Transmission Date: 20050211
  Serious: Yes (Hospitalization)
  Sender: FDA-Public Use
  Company Number: A01200404535

PATIENT
  Age: 75 Year
  Sex: Female

DRUGS (8)
  1. PLAVIX [Suspect]
     Indication: CORONARY ARTERY DISEASE
     Dosage: 75 MG OD
     Route: 048
     Dates: start: 20040713, end: 20040731
  2. SELOKEN ZOC (METOPROLOL SUCCINATE) [Concomitant]
  3. ORMOX (ISOSORBIDE MONONITRATE) [Concomitant]
  4. ZOCOR [Concomitant]
  5. HYDAC (FELODIPINE) [Concomitant]
  6. MODURETIC MITE (AMILORIDE) [Concomitant]
  7. FOSAMAX [Concomitant]
  8. THYROXIN (LEVOTHYROXINE SODIUM) [Concomitant]

REACTIONS (1)
  - PANCREATITIS ACUTE [None]
